FAERS Safety Report 6011513-3 (Version None)
Quarter: 2008Q4

REPORT INFORMATION
  Report Type: 
  Country: None (occurrence: None)
  Receive Date: 20081218
  Receipt Date: 20080829
  Transmission Date: 20090506
  Serious: No
  Sender: FDA-Public Use
  Company Number: US-ASTRAZENECA-2008UW18001

PATIENT
  Age: 65 Year
  Sex: Female
  Weight: 44.9 kg

DRUGS (3)
  1. CRESTOR [Suspect]
     Indication: BLOOD CHOLESTEROL INCREASED
     Route: 048
     Dates: start: 20070101, end: 20080101
  2. CRESTOR [Suspect]
     Route: 048
     Dates: start: 20080101, end: 20080101
  3. PREMARIN [Concomitant]

REACTIONS (7)
  - ARTHRALGIA [None]
  - BONE PAIN [None]
  - GAIT DISTURBANCE [None]
  - GENERALISED ERYTHEMA [None]
  - HYPERHIDROSIS [None]
  - PYREXIA [None]
  - TREMOR [None]
